FAERS Safety Report 8831385 (Version 3)
Quarter: 2014Q2

REPORT INFORMATION
  Report Type: Spontaneous
  Country: US (occurrence: US)
  Receive Date: 20121009
  Receipt Date: 20140401
  Transmission Date: 20141212
  Serious: Yes (Hospitalization, Other)
  Sender: FDA-Public Use
  Company Number: US-BAYER-2012-104132

PATIENT
  Age: 35 Year
  Sex: Female
  Weight: 104 kg

DRUGS (6)
  1. YAZ [Suspect]
     Dosage: UNK
     Dates: start: 20020101
  2. NIFEDIPINE [Concomitant]
     Dosage: UNK
     Dates: start: 2005
  3. HYDROCHLOROTHIAZIDE [Concomitant]
     Dosage: UNK
     Dates: start: 2005
  4. PHENTERMINE [Concomitant]
     Dosage: 37.5 MG, UNK
  5. TRETINOIN [Concomitant]
     Dosage: 0.05 %, UNK
  6. CLINDAMYCIN [Concomitant]
     Dosage: 1 %, UNK

REACTIONS (9)
  - Cholecystectomy [None]
  - Cholecystitis chronic [None]
  - Pain [None]
  - Injury [None]
  - General physical health deterioration [None]
  - Emotional distress [None]
  - Anhedonia [None]
  - Anxiety [None]
  - Pain [None]
